FAERS Safety Report 21583208 (Version 1)
Quarter: 2022Q4

REPORT INFORMATION
  Report Type: Spontaneous
  Country: US (occurrence: None)
  Receive Date: 20221110
  Receipt Date: 20221110
  Transmission Date: 20230113
  Serious: Yes (Death)
  Sender: FDA-Public Use
  Company Number: None

PATIENT
  Sex: Female

DRUGS (4)
  1. CAPECITABINE [Suspect]
     Active Substance: CAPECITABINE
     Indication: Neoplasm
     Dosage: TAKE 2 TABLETS BY MOUTH TWICE DAILY FOR 5 DAYS PER WEEK FOR 5 WEEKS?
     Route: 048
     Dates: start: 20210924
  2. CHLORHEX GLU SOL [Concomitant]
  3. LEVOTHYROXIN TAB [Concomitant]
  4. ZENPEP [Concomitant]
     Active Substance: PANCRELIPASE AMYLASE\PANCRELIPASE LIPASE\PANCRELIPASE PROTEASE

REACTIONS (1)
  - Death [None]
